FAERS Safety Report 7391124-8 (Version None)
Quarter: 2011Q2

REPORT INFORMATION
  Report Type: 
  Country: None (occurrence: None)
  Receive Date: 20110404
  Receipt Date: 20110322
  Transmission Date: 20111010
  Serious: Yes (Other)
  Sender: FDA-Public Use
  Company Number: CH-ELI_LILLY_AND_COMPANY-CH201103006145

PATIENT
  Age: 35 Year
  Sex: Female

DRUGS (4)
  1. TOPAMAX [Concomitant]
     Dosage: 150 MG, QD
     Dates: end: 20100530
  2. FLUCTINE [Suspect]
     Indication: BULIMIA NERVOSA
     Dosage: 60 MG, QD
     Dates: start: 20090101, end: 20100530
  3. DAFALGAN [Concomitant]
     Dosage: 500 MG, WEEKLY (1/W)
  4. ABILIFY [Concomitant]
     Indication: SCHIZOAFFECTIVE DISORDER
     Dosage: 30 MG, QD
     Dates: end: 20100530

REACTIONS (4)
  - PREGNANCY [None]
  - EATING DISORDER [None]
  - DRUG EXPOSURE DURING PREGNANCY [None]
  - DRUG EXPOSURE VIA BREAST MILK [None]
